FAERS Safety Report 23907938 (Version 3)
Quarter: 2024Q3

REPORT INFORMATION
  Report Type: Report from Study
  Country: US (occurrence: None)
  Receive Date: 20240528
  Receipt Date: 20240809
  Transmission Date: 20241017
  Serious: Yes (Other)
  Sender: ASTRAZENECA
  Company Number: 2024A087543

PATIENT
  Age: 77 Year
  Sex: Female

DRUGS (3)
  1. FARXIGA [Interacting]
     Active Substance: DAPAGLIFLOZIN PROPANEDIOL
     Indication: Renal failure
     Route: 048
     Dates: start: 20231227, end: 20240324
  2. FARXIGA [Interacting]
     Active Substance: DAPAGLIFLOZIN PROPANEDIOL
     Indication: Renal failure
     Route: 048
     Dates: start: 20231209, end: 20231227
  3. FARXIGA [Interacting]
     Active Substance: DAPAGLIFLOZIN PROPANEDIOL
     Indication: Renal failure
     Route: 048
     Dates: start: 20240119, end: 20240206

REACTIONS (7)
  - Drug interaction [Unknown]
  - Renal failure [Recovered/Resolved]
  - Nephropathy toxic [Recovering/Resolving]
  - Dyspnoea [Recovered/Resolved]
  - Device defective [Unknown]
  - Drug ineffective [Unknown]
  - Laboratory test abnormal [Unknown]

NARRATIVE: CASE EVENT DATE: 20240204
